FAERS Safety Report 13390863 (Version 1)
Quarter: 2017Q1

REPORT INFORMATION
  Report Type: Spontaneous
  Country: US (occurrence: US)
  Receive Date: 20170331
  Receipt Date: 20170331
  Transmission Date: 20170429
  Serious: Yes (Other)
  Sender: FDA-Public Use
  Company Number: None

PATIENT
  Age: 29 Year
  Sex: Female
  Weight: 58.5 kg

DRUGS (1)
  1. SUBOXONE [Suspect]
     Active Substance: BUPRENORPHINE HYDROCHLORIDE\NALOXONE HYDROCHLORIDE
     Indication: DRUG DEPENDENCE
     Dosage: QUANTITY:2000 STRIPS;?
     Route: 060
     Dates: start: 20100722, end: 20170330

REACTIONS (6)
  - Dental caries [None]
  - Toothache [None]
  - Tooth loss [None]
  - Tooth discolouration [None]
  - Sensitivity of teeth [None]
  - Tooth fracture [None]

NARRATIVE: CASE EVENT DATE: 20100722
